FAERS Safety Report 8144524-2 (Version None)
Quarter: 2012Q1

REPORT INFORMATION
  Report Type: 
  Country: None (occurrence: None)
  Receive Date: 20120217
  Receipt Date: 20120210
  Transmission Date: 20120608
  Serious: Yes (Other)
  Sender: FDA-Public Use
  Company Number: NZ-ABBOTT-12P-118-0903599-00

PATIENT
  Sex: Female

DRUGS (1)
  1. HUMIRA [Suspect]
     Indication: RHEUMATOID ARTHRITIS

REACTIONS (5)
  - CHOLECYSTITIS [None]
  - DEVICE RELATED INFECTION [None]
  - KNEE ARTHROPLASTY [None]
  - LIVER FUNCTION TEST ABNORMAL [None]
  - CERVICAL VERTEBRAL FRACTURE [None]
